FAERS Safety Report 8971127 (Version 1)
Quarter: 2012Q4

REPORT INFORMATION
  Report Type: 
  Country: US (occurrence: US)
  Receive Date: 20121218
  Receipt Date: 20121218
  Transmission Date: 20130627
  Serious: Yes (Death)
  Sender: FDA-Public Use
  Company Number: US-ASTELLAS-2012US012205

PATIENT
  Age: 83 Year
  Sex: Female

DRUGS (1)
  1. VESICARE [Suspect]
     Indication: INCONTINENCE
     Dosage: 10 mg, UID/QD
     Route: 048
     Dates: start: 20120328, end: 20121019

REACTIONS (2)
  - Transient ischaemic attack [Fatal]
  - General physical health deterioration [Fatal]
